FAERS Safety Report 10369287 (Version 1)
Quarter: 2014Q1

REPORT INFORMATION
  Report Type: Spontaneous
  Country: US (occurrence: None)
  Receive Date: 20140306
  Receipt Date: 20140306
  Transmission Date: 20141002
  Serious: Yes (Hospitalization)
  Sender: FDA-Public Use
  Company Number: 163-21880-13024045

PATIENT
  Age: 87 Year
  Sex: Female

DRUGS (1)
  1. REVLIMID [Suspect]
     Indication: PLASMA CELL MYELOMA
     Dosage: 10 MG, 10 CAPSULES 1 IN 1 D, PO 06/ 2010 - UNKNOWN THERAPY DATES
     Route: 048
     Dates: start: 201006

REACTIONS (1)
  - Pancreatitis [None]
